FAERS Safety Report 4849675-3 (Version None)
Quarter: 2005Q4

REPORT INFORMATION
  Report Type: 
  Country: None (occurrence: None)
  Receive Date: 20051115
  Receipt Date: 20050812
  Transmission Date: 20060501
  Serious: Yes (Hospitalization)
  Sender: FDA-Public Use
  Company Number: 407029

PATIENT
  Age: 54 Year
  Sex: Male

DRUGS (2)
  1. PEGASYS [Suspect]
     Dosage: SUBCUTANEOUS
     Route: 058
     Dates: start: 20050310
  2. RIBAVIRIN [Suspect]
     Dosage: ORAL
     Route: 048
     Dates: start: 20050310

REACTIONS (3)
  - PNEUMONIA [None]
  - PYREXIA [None]
  - VOMITING [None]
